FAERS Safety Report 19967717 (Version 1)
Quarter: 2021Q4

REPORT INFORMATION
  Report Type: Spontaneous
  Country: US (occurrence: US)
  Receive Date: 20211018
  Receipt Date: 20211018
  Transmission Date: 20220303
  Serious: No
  Sender: FDA-Public Use
  Company Number: None

PATIENT
  Age: 25 Year
  Sex: Female
  Weight: 65.25 kg

DRUGS (11)
  1. AIMOVIG [Suspect]
     Active Substance: ERENUMAB-AOOE
     Indication: Migraine
     Dosage: ?          OTHER FREQUENCY:MONTHLY;
     Route: 058
     Dates: start: 20210408
  2. NORTRIPTYLINE [Concomitant]
     Active Substance: NORTRIPTYLINE
  3. AIMOVIG [Concomitant]
     Active Substance: ERENUMAB-AOOE
  4. GABAPENTIN [Concomitant]
     Active Substance: GABAPENTIN
  5. TILIA FE [Concomitant]
     Active Substance: ETHINYL ESTRADIOL\NORETHINDRONE ACETATE
  6. MAGNESIUM OXIDE [Concomitant]
     Active Substance: MAGNESIUM OXIDE
  7. COENZYME Q10 [Concomitant]
     Active Substance: DIETARY SUPPLEMENT\UBIDECARENONE
  8. FISH OIL [Concomitant]
     Active Substance: FISH OIL
  9. VITAMINS [Concomitant]
     Active Substance: VITAMINS
  10. HERBALS\TURMERIC [Concomitant]
     Active Substance: HERBALS\TURMERIC
  11. B2 [Concomitant]

REACTIONS (4)
  - Injection site pain [None]
  - Injection site rash [None]
  - Muscle spasms [None]
  - Pain in extremity [None]

NARRATIVE: CASE EVENT DATE: 20211014
